FAERS Safety Report 13659472 (Version 1)
Quarter: 2017Q2

REPORT INFORMATION
  Report Type: Spontaneous
  Country: US (occurrence: US)
  Receive Date: 20170615
  Receipt Date: 20170615
  Transmission Date: 20170830
  Serious: Yes (Hospitalization)
  Sender: FDA-Public Use
  Company Number: None

PATIENT
  Age: 48 Year
  Sex: Female
  Weight: 70 kg

DRUGS (1)
  1. ENTYVIO [Suspect]
     Active Substance: VEDOLIZUMAB
     Indication: CROHN^S DISEASE
     Dosage: 300 MG INTRAVENOUS DRIP, EVERY 8 WEEKS?
     Route: 041

REACTIONS (5)
  - Blood pressure decreased [None]
  - Chills [None]
  - Vomiting [None]
  - Heart rate increased [None]
  - Body temperature increased [None]

NARRATIVE: CASE EVENT DATE: 20170605
